FAERS Safety Report 10759656 (Version 2)
Quarter: 2016Q3

REPORT INFORMATION
  Report Type: Spontaneous
  Country: US (occurrence: US)
  Receive Date: 20150203
  Receipt Date: 20160722
  Transmission Date: 20161109
  Serious: Yes (Other)
  Sender: FDA-Public Use
  Company Number: US-ABBVIE-15P-163-1340646-00

PATIENT
  Sex: Male

DRUGS (2)
  1. ANDROGEL [Suspect]
     Active Substance: TESTOSTERONE
     Indication: BLOOD TESTOSTERONE DECREASED
     Route: 061
     Dates: start: 2011, end: 201405
  2. ANDRODERM [Suspect]
     Active Substance: TESTOSTERONE
     Indication: BLOOD TESTOSTERONE DECREASED
     Route: 062
     Dates: start: 2011, end: 201405

REACTIONS (6)
  - Pain [Unknown]
  - Anhedonia [Unknown]
  - Fear [Unknown]
  - Cerebrovascular accident [Unknown]
  - Loss of employment [Unknown]
  - Anxiety [Unknown]

NARRATIVE: CASE EVENT DATE: 201405
